FAERS Safety Report 17192541 (Version 1)
Quarter: 2019Q4

REPORT INFORMATION
  Report Type: Spontaneous
  Country: US (occurrence: US)
  Receive Date: 20191223
  Receipt Date: 20191223
  Transmission Date: 20200122
  Serious: Yes (Other)
  Sender: FDA-Public Use
  Company Number: US-ASTRAZENECA-2019SE13888

PATIENT
  Age: 65 Year
  Sex: Female
  Weight: 47.6 kg

DRUGS (6)
  1. DALIRESP [Suspect]
     Active Substance: ROFLUMILAST
     Indication: EMPHYSEMA
     Route: 048
     Dates: start: 2012, end: 201705
  2. DALIRESP [Suspect]
     Active Substance: ROFLUMILAST
     Indication: CHRONIC OBSTRUCTIVE PULMONARY DISEASE
     Route: 048
     Dates: start: 2012, end: 201705
  3. LIDOCAINE PATCH [Concomitant]
     Active Substance: LIDOCAINE
     Indication: BACK PAIN
  4. LITHIUM. [Suspect]
     Active Substance: LITHIUM
     Route: 065
  5. VENTOLIN [Concomitant]
     Active Substance: ALBUTEROL SULFATE
     Indication: CHRONIC OBSTRUCTIVE PULMONARY DISEASE
     Dosage: AS REQUIRED
     Route: 055
  6. DIAZAPAM [Concomitant]
     Active Substance: DIAZEPAM
     Indication: BIPOLAR DISORDER
     Dosage: 5.0MG AS REQUIRED
     Route: 055

REACTIONS (20)
  - Colitis ulcerative [Recovering/Resolving]
  - Weight increased [Unknown]
  - Product use in unapproved indication [Unknown]
  - Lactose intolerance [Recovering/Resolving]
  - Dehydration [Recovered/Resolved]
  - Neck pain [Unknown]
  - Neck injury [Unknown]
  - Urticaria [Unknown]
  - Toxicity to various agents [Unknown]
  - Dyspnoea [Unknown]
  - Weight decreased [Recovered/Resolved]
  - Migraine [Unknown]
  - Muscle spasms [Unknown]
  - Coeliac disease [Unknown]
  - Medical diet [Unknown]
  - Rash [Unknown]
  - Visual impairment [Unknown]
  - Diarrhoea [Recovering/Resolving]
  - Eating disorder [Unknown]
  - Off label use [Unknown]

NARRATIVE: CASE EVENT DATE: 2013
